FAERS Safety Report 4918203-6 (Version None)
Quarter: 2006Q1

REPORT INFORMATION
  Report Type: 
  Country: None (occurrence: None)
  Receive Date: 20060215
  Receipt Date: 20060203
  Transmission Date: 20060701
  Serious: Yes (Other)
  Sender: FDA-Public Use
  Company Number: 13413

PATIENT
  Age: 64 Year
  Sex: Male

DRUGS (1)
  1. AMIODARONE [Suspect]

REACTIONS (4)
  - DRUG TOXICITY [None]
  - LUNG NEOPLASM MALIGNANT [None]
  - PULMONARY MASS [None]
  - WEIGHT DECREASED [None]
